FAERS Safety Report 11928163 (Version 2)
Quarter: 2016Q1

REPORT INFORMATION
  Report Type: Spontaneous
  Country: GB (occurrence: GB)
  Receive Date: 20160119
  Receipt Date: 20160201
  Transmission Date: 20160526
  Serious: Yes (Hospitalization, Other)
  Sender: FDA-Public Use
  Company Number: GB-VIIV HEALTHCARE LIMITED-GB2016004189

PATIENT
  Age: 30 Year
  Sex: Female
  Weight: 66 kg

DRUGS (4)
  1. NEVIRAPINE. [Suspect]
     Active Substance: NEVIRAPINE
     Indication: HIV INFECTION
     Dosage: 200 MG, UNK
     Route: 048
     Dates: start: 19990525, end: 19990703
  2. OXYTOCIN. [Concomitant]
     Active Substance: OXYTOCIN
     Indication: PRODUCT USED FOR UNKNOWN INDICATION
     Route: 065
  3. ZIDOVUDINE. [Suspect]
     Active Substance: ZIDOVUDINE
     Indication: HIV INFECTION
     Dosage: 500 MG, QD
     Route: 048
     Dates: start: 19990525, end: 19990703
  4. VIDEX [Suspect]
     Active Substance: DIDANOSINE
     Indication: HIV INFECTION
     Dosage: 400 MG, QD
     Route: 048
     Dates: start: 19990525, end: 19990703

REACTIONS (6)
  - Amniotic cavity infection [Unknown]
  - Premature delivery [Recovered/Resolved]
  - Pyrexia [Unknown]
  - Premature rupture of membranes [Unknown]
  - Induced labour [Unknown]
  - Headache [Unknown]

NARRATIVE: CASE EVENT DATE: 199907
